FAERS Safety Report 9350719 (Version 1)
Quarter: 2013Q2

REPORT INFORMATION
  Report Type: Report from Study
  Country: JP (occurrence: JP)
  Receive Date: 20130617
  Receipt Date: 20130617
  Transmission Date: 20140414
  Serious: Yes (Death, Other)
  Sender: FDA-Public Use
  Company Number: JP-GENZYME-THYM-1003861

PATIENT
  Age: 56 Year
  Sex: Male
  Weight: 57 kg

DRUGS (18)
  1. THYMOGLOBULIN [Suspect]
     Indication: BONE MARROW CONDITIONING REGIMEN
     Dosage: 125 MG, QD
     Route: 065
     Dates: start: 20120521, end: 20120521
  2. THYMOGLOBULIN [Suspect]
     Indication: PROPHYLAXIS AGAINST GRAFT VERSUS HOST DISEASE
     Dosage: UNK
     Route: 065
     Dates: start: 20120530, end: 20120530
  3. POSTERISAN [Concomitant]
     Indication: HAEMORRHOIDS
     Dosage: UNK
     Route: 065
     Dates: start: 20120305, end: 20120821
  4. TEICOPLANIN [Concomitant]
     Indication: PROPHYLAXIS
     Dosage: UNK
     Route: 065
     Dates: start: 20120809, end: 20120817
  5. BAKTAR [Concomitant]
     Indication: PROPHYLAXIS
     Dosage: UNK
     Route: 065
     Dates: start: 20120201, end: 20120818
  6. PROGRAF [Concomitant]
     Indication: PROPHYLAXIS
     Dosage: UNK
     Route: 065
     Dates: start: 20120528, end: 20120808
  7. FINIBAX [Concomitant]
     Indication: PROPHYLAXIS
     Dosage: UNK
     Route: 042
     Dates: start: 20120528, end: 20120611
  8. CHLOR-TRIMETON [Concomitant]
     Indication: PROPHYLAXIS
     Dosage: UNK
     Route: 065
     Dates: start: 20120520, end: 20120520
  9. DENOSINE [Concomitant]
     Indication: PROPHYLAXIS
     Dosage: UNK
     Route: 042
     Dates: start: 20120711, end: 20120725
  10. PREDNISONE [Concomitant]
     Indication: GRAFT VERSUS HOST DISEASE
     Dosage: UNK
     Route: 065
     Dates: start: 20120612, end: 20120817
  11. VANCOMYCIN [Concomitant]
     Indication: PROPHYLAXIS
     Dosage: UNK
     Route: 065
     Dates: start: 20120514, end: 20120529
  12. SOL-MELCORT [Concomitant]
     Indication: PROPHYLAXIS
     Dosage: UNK
     Route: 065
     Dates: start: 20120523, end: 20120606
  13. MORPHINE HYDROCHLORIDE [Concomitant]
     Indication: NON-HODGKIN^S LYMPHOMA
     Dosage: UNK
     Route: 065
     Dates: start: 20120611, end: 20120821
  14. MORPHINE HYDROCHLORIDE [Concomitant]
     Indication: HEPATITIS B SURFACE ANTIBODY POSITIVE
  15. MORPHINE HYDROCHLORIDE [Concomitant]
     Indication: HEPATITIS B CORE ANTIBODY POSITIVE
  16. MORPHINE HYDROCHLORIDE [Concomitant]
     Indication: HAEMORRHOIDS
  17. MORPHINE HYDROCHLORIDE [Concomitant]
     Indication: INGUINAL HERNIA
  18. MORPHINE HYDROCHLORIDE [Concomitant]
     Indication: SOCIAL PROBLEM

REACTIONS (11)
  - Acute graft versus host disease in skin [Unknown]
  - Abscess [Unknown]
  - Pyrexia [Recovered/Resolved]
  - Cystitis haemorrhagic [Fatal]
  - Splenic rupture [Fatal]
  - Post transplant lymphoproliferative disorder [Fatal]
  - Sepsis [Fatal]
  - Cytomegalovirus enterocolitis [Unknown]
  - Haemosiderosis [Fatal]
  - Gastric ulcer [Fatal]
  - Pyrexia [Fatal]
